FAERS Safety Report 12492461 (Version 1)
Quarter: 2016Q2

REPORT INFORMATION
  Report Type: Spontaneous
  Country: US (occurrence: US)
  Receive Date: 20160623
  Receipt Date: 20160623
  Transmission Date: 20160815
  Serious: No
  Sender: FDA-Public Use
  Company Number: US-ASTRAZENECA-2016SE53484

PATIENT
  Age: 51 Year
  Sex: Female
  Weight: 99.8 kg

DRUGS (4)
  1. NEXIUM [Suspect]
     Active Substance: ESOMEPRAZOLE MAGNESIUM
     Indication: GASTROOESOPHAGEAL REFLUX DISEASE
     Route: 048
     Dates: start: 2015
  2. ASMANEX [Concomitant]
     Active Substance: MOMETASONE FUROATE
     Indication: ASTHMA
     Dosage: EVERY DAY
     Route: 055
     Dates: start: 2010
  3. UNK NOT SPECIFIED [Concomitant]
     Indication: PROPHYLAXIS
     Dosage: AS REQUIRED
     Route: 055
     Dates: start: 2010
  4. NEXIUM [Suspect]
     Active Substance: ESOMEPRAZOLE MAGNESIUM
     Indication: GASTROOESOPHAGEAL REFLUX DISEASE
     Route: 048
     Dates: start: 2001, end: 2015

REACTIONS (6)
  - Asthma [Unknown]
  - Chest discomfort [Unknown]
  - Throat irritation [Unknown]
  - Intentional product misuse [Unknown]
  - Gastrooesophageal reflux disease [Unknown]
  - Vomiting [Unknown]

NARRATIVE: CASE EVENT DATE: 2010
